FAERS Safety Report 25965686 (Version 1)
Quarter: 2025Q4

REPORT INFORMATION
  Report Type: Spontaneous
  Country: US (occurrence: US)
  Receive Date: 20251027
  Receipt Date: 20251027
  Transmission Date: 20260118
  Serious: No
  Sender: ANI
  Company Number: US-ANIPHARMA-2025-US-043301

PATIENT
  Age: 67 Year
  Sex: Female

DRUGS (2)
  1. ANASTROZOLE [Suspect]
     Active Substance: ANASTROZOLE
     Indication: Product used for unknown indication
  2. AROMASIN [Suspect]
     Active Substance: EXEMESTANE

REACTIONS (2)
  - Insomnia [Unknown]
  - Pain [Unknown]
